FAERS Safety Report 7314218-1 (Version None)
Quarter: 2011Q1

REPORT INFORMATION
  Report Type: 
  Country: None (occurrence: None)
  Receive Date: 20110225
  Receipt Date: 20100609
  Transmission Date: 20110831
  Serious: No
  Sender: FDA-Public Use
  Company Number: US-MYLANLABS-2010S1010381

PATIENT
  Age: 45 Year
  Sex: Male

DRUGS (5)
  1. PRILOSEC [Concomitant]
  2. SIMVASTATIN [Concomitant]
     Indication: HYPERLIPIDAEMIA
  3. ASPIRIN [Concomitant]
  4. AMNESTEEM [Suspect]
     Indication: ACNE
     Route: 048
     Dates: start: 20100301, end: 20100401
  5. AMNESTEEM [Suspect]
     Route: 048
     Dates: start: 20100401, end: 20100501

REACTIONS (1)
  - ARTHRALGIA [None]
